FAERS Safety Report 6876428-7 (Version None)
Quarter: 2010Q3

REPORT INFORMATION
  Report Type: 
  Country: None (occurrence: None)
  Receive Date: 20100727
  Receipt Date: 20100419
  Transmission Date: 20110219
  Serious: Yes (Death)
  Sender: FDA-Public Use
  Company Number: US-BAYER-200925240NA

PATIENT
  Age: 59 Year
  Sex: Male
  Weight: 85 kg

DRUGS (25)
  1. MAGNEVIST [Suspect]
     Indication: NUCLEAR MAGNETIC RESONANCE IMAGING
     Dates: start: 20060113, end: 20060113
  2. OMNISCAN [Suspect]
     Indication: NUCLEAR MAGNETIC RESONANCE IMAGING
     Dates: start: 20070419, end: 20070419
  3. OPTIMARK [Suspect]
     Indication: NUCLEAR MAGNETIC RESONANCE IMAGING
  4. MULTIHANCE [Suspect]
     Indication: NUCLEAR MAGNETIC RESONANCE IMAGING
  5. PROHANCE [Suspect]
     Indication: NUCLEAR MAGNETIC RESONANCE IMAGING
  6. UNKNOWN GBCA [Suspect]
     Indication: PRODUCT USED FOR UNKNOWN INDICATION
     Dates: start: 20020814, end: 20020814
  7. CYMBALTA [Concomitant]
     Dosage: 30 MG DAILY
  8. IRON [Concomitant]
     Dates: start: 20050301, end: 20070628
  9. RENAGEL [Concomitant]
     Dosage: 800 MG
  10. PREDNISONE [Concomitant]
  11. IMMUNOSUPPRESSANTS [Concomitant]
  12. AMIODARONE HCL [Concomitant]
     Dates: start: 20000101, end: 20070627
  13. LISINOPRIL [Concomitant]
     Dosage: ON AND OFF FOR SINCE LATE 80S
  14. NITROGLYCERIN [Concomitant]
  15. NORVASC [Concomitant]
     Dosage: 5 MG DAILY
  16. COZAAR [Concomitant]
     Dosage: 50 MG DAILY
  17. WARFARIN [Concomitant]
     Dosage: ON AND OFF FOR SINCE LATE 80S
  18. PLAVIX [Concomitant]
  19. LIPITOR [Concomitant]
  20. LABETALOL HCL [Concomitant]
     Dosage: 200 MG TID
  21. SENSIPAR [Concomitant]
     Dosage: 30 MG DAILY
  22. MIRAPEX [Concomitant]
  23. REQUIP [Concomitant]
  24. LYRICA [Concomitant]
  25. COUMADIN [Concomitant]
     Dosage: 2.5 MG DAILY

REACTIONS (21)
  - ARTHRALGIA [None]
  - BLISTER [None]
  - DEFORMITY [None]
  - DRY SKIN [None]
  - EXTREMITY CONTRACTURE [None]
  - GENERAL PHYSICAL HEALTH DETERIORATION [None]
  - JOINT RANGE OF MOTION DECREASED [None]
  - JOINT STIFFNESS [None]
  - MOBILITY DECREASED [None]
  - NEPHROGENIC SYSTEMIC FIBROSIS [None]
  - PAIN [None]
  - PRURITUS [None]
  - RASH [None]
  - SCAR [None]
  - SKIN BURNING SENSATION [None]
  - SKIN DISCOLOURATION [None]
  - SKIN FIBROSIS [None]
  - SKIN HYPERTROPHY [None]
  - SKIN INDURATION [None]
  - SKIN TIGHTNESS [None]
  - SKIN ULCER [None]
